FAERS Safety Report 10064737 (Version 1)
Quarter: 2014Q2

REPORT INFORMATION
  Report Type: Spontaneous
  Country: AU (occurrence: AU)
  Receive Date: 20140408
  Receipt Date: 20140408
  Transmission Date: 20141212
  Serious: Yes (Life-Threatening)
  Sender: FDA-Public Use
  Company Number: AU-BANPHARM-20142486

PATIENT
  Age: 28 Year
  Sex: Male

DRUGS (1)
  1. IBUPROFEN 200MG/ 12.8 MG CODEIN PHOPHATE [Suspect]
     Dosage: 72-96 DF, QD,

REACTIONS (9)
  - Resuscitation [Recovered/Resolved]
  - Overdose [Unknown]
  - Duodenitis [Unknown]
  - Oesophagitis [Recovered/Resolved]
  - Gastric ulcer [Unknown]
  - Duodenal ulcer [Unknown]
  - Duodenal stenosis [Recovered/Resolved]
  - Pneumonia aspiration [Unknown]
  - Diverticulum intestinal [Unknown]
